FAERS Safety Report 23077257 (Version 3)
Quarter: 2023Q4

REPORT INFORMATION
  Report Type: Report from Study
  Country: CA (occurrence: CA)
  Receive Date: 20231018
  Receipt Date: 20231221
  Transmission Date: 20240109
  Serious: Yes (Other)
  Sender: FDA-Public Use
  Company Number: CA-JNJFOC-20230726546

PATIENT
  Age: 36 Year
  Sex: Female
  Weight: 60 kg

DRUGS (1)
  1. REMICADE [Suspect]
     Active Substance: INFLIXIMAB
     Indication: Crohn^s disease
     Dosage: THE PATIENT WAS CANCEL 04-AUG-2023^S APPOINTMENT AND MOVED TO 07-AUG-2023 AT 1:30 PM.?LAST INFUSION-
     Route: 041
     Dates: start: 20201216

REACTIONS (8)
  - Cyst [Recovering/Resolving]
  - Sinusitis [Recovered/Resolved]
  - Oral herpes [Recovering/Resolving]
  - Frequent bowel movements [Unknown]
  - Abdominal pain [Unknown]
  - Diarrhoea [Unknown]
  - Exposure during pregnancy [Not Recovered/Not Resolved]
  - Nasal congestion [Not Recovered/Not Resolved]

NARRATIVE: CASE EVENT DATE: 20230601
